FAERS Safety Report 10944839 (Version 1)
Quarter: 2015Q1

REPORT INFORMATION
  Report Type: Spontaneous
  Country: US (occurrence: None)
  Receive Date: 20150319
  Receipt Date: 20150319
  Transmission Date: 20150721
  Serious: Yes (Other)
  Sender: FDA-Public Use
  Company Number: 2786733

PATIENT
  Age: 66 Year
  Sex: Female
  Weight: 61.24 kg

DRUGS (4)
  1. BUPIVACAINE HCL [Suspect]
     Active Substance: BUPIVACAINE HYDROCHLORIDE
     Indication: HIGH FREQUENCY ABLATION
     Dosage: INTRAVENOUS (NOT OTHERWISE SPECIFIED)
     Route: 042
     Dates: start: 20150203
  2. DEPO-MEDROL [Suspect]
     Active Substance: METHYLPREDNISOLONE ACETATE
     Indication: HIGH FREQUENCY ABLATION
     Dosage: 40 MG MILLIGRAMS INTRAVENOUS (NOT OTHERWISE SPECIFIED)
     Route: 042
     Dates: start: 20150203
  3. 2% LIDOCAINE HCL INJ, USP (LIDOCAINE HYDROCHLORIDE) [Suspect]
     Active Substance: LIDOCAINE HYDROCHLORIDE
     Indication: HIGH FREQUENCY ABLATION
     Dosage: 3 MG MILLIGRAMS INTRAVENOUS (NOT OTHERWISE SPECIFIED)?
     Route: 042
     Dates: start: 20150203
  4. FENTANYL CITRATE INJECTION USP (FENTANYL CITRATE) [Suspect]
     Active Substance: FENTANYL CITRATE
     Indication: HIGH FREQUENCY ABLATION
     Dosage: 100 UG MICROGRAMS INTRAVENOUS (NOT OTHERWISE SPECIFIED)
     Route: 042
     Dates: start: 20150203

REACTIONS (1)
  - Hypersensitivity [None]

NARRATIVE: CASE EVENT DATE: 20150203
